FAERS Safety Report 4345265-X (Version None)
Quarter: 2004Q2

REPORT INFORMATION
  Report Type: 
  Country: None (occurrence: None)
  Receive Date: 20040423
  Receipt Date: 20040415
  Transmission Date: 20050107
  Serious: Yes (Hospitalization, Disabling)
  Sender: FDA-Public Use
  Company Number: PHBS2004VE05147

PATIENT
  Age: 48 Year
  Sex: Male

DRUGS (2)
  1. COMBAREN [Suspect]
     Indication: PAIN
     Route: 048
  2. KETOPROFEN [Suspect]
     Indication: PAIN
     Route: 065

REACTIONS (2)
  - CEREBROVASCULAR ACCIDENT [None]
  - HEMIPARESIS [None]
